FAERS Safety Report 5261032-7 (Version None)
Quarter: 2007Q1

REPORT INFORMATION
  Report Type: 
  Country: None (occurrence: None)
  Receive Date: 20070309
  Receipt Date: 20070228
  Transmission Date: 20070707
  Serious: Yes (Hospitalization, Other)
  Sender: FDA-Public Use
  Company Number: 2006UW06982

PATIENT
  Age: 31 Year
  Sex: Female
  Weight: 62.7 kg

DRUGS (5)
  1. SEROQUEL [Suspect]
     Indication: DEPRESSION
     Dosage: 100-300 MG PO
     Dates: start: 20030101, end: 20051201
  2. SEROQUEL [Suspect]
     Indication: ANXIETY
     Dosage: 100-300 MG PO
     Dates: start: 20030101, end: 20051201
  3. ZYPREXA [Concomitant]
  4. PROZAC [Concomitant]
  5. XANAX [Concomitant]

REACTIONS (5)
  - HOMICIDAL IDEATION [None]
  - OVERDOSE [None]
  - PANCREATITIS ACUTE [None]
  - SUICIDAL IDEATION [None]
  - SUICIDE ATTEMPT [None]
